FAERS Safety Report 8847932 (Version 2)
Quarter: 2012Q4

REPORT INFORMATION
  Report Type: 
  Country: JP (occurrence: JP)
  Receive Date: 20121018
  Receipt Date: 20121214
  Transmission Date: 20130627
  Serious: Yes (Hospitalization, Other)
  Sender: FDA-Public Use
  Company Number: JP-009507513-1210JPN005676

PATIENT
  Age: 64 Year
  Sex: Female
  Weight: 43 kg

DRUGS (16)
  1. PEGINTRON [Suspect]
     Indication: CHRONIC HEPATITIS C
     Dosage: 1.4 Microgram per kilogram, qw
     Route: 058
     Dates: start: 20120404, end: 20120827
  2. PEGINTRON [Suspect]
     Dosage: 0.7 Microgram per kilogram, qw
     Route: 058
     Dates: start: 20120904
  3. REBETOL [Suspect]
     Indication: CHRONIC HEPATITIS C
     Dosage: 600 mg, qd
     Route: 048
     Dates: start: 20120404, end: 20120416
  4. REBETOL [Suspect]
     Dosage: 200 mg, qd
     Route: 048
     Dates: start: 20120417, end: 20120507
  5. REBETOL [Suspect]
     Dosage: 57.14 mg, qd
     Route: 048
     Dates: start: 20120508, end: 20120514
  6. REBETOL [Suspect]
     Dosage: 200 mg/ every other day
     Route: 048
     Dates: start: 20120605, end: 20120618
  7. REBETOL [Suspect]
     Dosage: 200 mg/ every other day
     Route: 048
     Dates: start: 20120626, end: 20120827
  8. REBETOL [Suspect]
     Dosage: 200 mg, qd
     Route: 048
     Dates: start: 20120911
  9. TELAVIC [Suspect]
     Indication: CHRONIC HEPATITIS C
     Dosage: 2250 mg, qd
     Route: 048
     Dates: start: 20120404, end: 20120514
  10. TELAVIC [Suspect]
     Dosage: 750 mg, qd
     Route: 048
     Dates: start: 20120515, end: 20120521
  11. TELAVIC [Suspect]
     Dosage: 750 mg, qd
     Route: 048
     Dates: start: 20120605, end: 20120702
  12. URSO [Concomitant]
     Indication: CHRONIC HEPATITIS C
     Dosage: 300 mg, qd, POR
     Route: 048
     Dates: end: 20120522
  13. PROHEPARUM [Concomitant]
     Indication: CHRONIC HEPATITIS C
     Dosage: 6 tablets, qd
     Route: 048
     Dates: end: 20120522
  14. OMEPRAZOLE [Concomitant]
     Indication: PROPHYLAXIS
     Dosage: 20 mg, qd
     Route: 048
     Dates: start: 20120406
  15. NOVAMIN (PROCHLORPERAZINE MALEATE) [Concomitant]
     Indication: PROPHYLAXIS
     Dosage: 15 mg, qd
     Route: 048
     Dates: start: 20120424, end: 20120625
  16. RIVOTRIL [Concomitant]
     Indication: PROPHYLAXIS
     Dosage: 0.5 mg, qd
     Route: 048
     Dates: start: 20120904

REACTIONS (2)
  - Decreased appetite [Recovered/Resolved]
  - Haemoglobin decreased [Recovered/Resolved]
